FAERS Safety Report 23930101 (Version 1)
Quarter: 2024Q2

REPORT INFORMATION
  Report Type: Spontaneous
  Country: JP (occurrence: JP)
  Receive Date: 20240601
  Receipt Date: 20240601
  Transmission Date: 20240715
  Serious: Yes (Other)
  Sender: FDA-Public Use
  Company Number: JP-AMGEN-JPNSP2024101831

PATIENT
  Age: 73 Year
  Sex: Female

DRUGS (3)
  1. EVENITY [Suspect]
     Active Substance: ROMOSOZUMAB-AQQG
     Indication: Product used for unknown indication
     Dosage: UNK
     Route: 058
  2. PREDONINE [Concomitant]
     Active Substance: PREDNISOLONE
     Indication: Myalgia
     Dosage: 7.5 MILLIGRAM
  3. MIROGABALIN BESYLATE [Concomitant]
     Active Substance: MIROGABALIN BESYLATE
     Indication: Myalgia
     Dosage: UNK

REACTIONS (4)
  - Cervix carcinoma [Unknown]
  - Injection site pain [Unknown]
  - Blood creatine phosphokinase increased [Unknown]
  - Pain in extremity [Unknown]
